FAERS Safety Report 13791533 (Version 1)
Quarter: 2017Q3

REPORT INFORMATION
  Report Type: Spontaneous
  Country: US (occurrence: US)
  Receive Date: 20170725
  Receipt Date: 20170725
  Transmission Date: 20171127
  Serious: No
  Sender: FDA-Public Use
  Company Number: US-ALLERGAN-1712643US

PATIENT
  Sex: Male
  Weight: 86.17 kg

DRUGS (10)
  1. OMEPRAZOLE. [Concomitant]
     Active Substance: OMEPRAZOLE
     Dosage: UNK, QD
  2. ESTER-C [Concomitant]
     Active Substance: CALCIUM\VITAMINS
     Dosage: UNK, QD
  3. DECONGESTANTS AND ANTIHISTAMINE [Concomitant]
     Dosage: UNK, PRN
  4. OMEGA 3 FISH OIL PLUS VITAMIN D [Concomitant]
     Dosage: UNK, TID
  5. LIALDA [Concomitant]
     Active Substance: MESALAMINE
     Dosage: UNK, QID
  6. KLS FIBER [Concomitant]
     Dosage: UNK, QD
  7. CASODEX 50 [Concomitant]
     Dosage: 50 MG, QD
  8. TRELSTAR [Suspect]
     Active Substance: TRIPTORELIN PAMOATE
     Indication: PRODUCT USED FOR UNKNOWN INDICATION
     Dosage: UNK
     Route: 065
  9. LISINOPRIL. [Concomitant]
     Active Substance: LISINOPRIL
     Dosage: UNK, QD
  10. ACETAMINOPHEN. [Concomitant]
     Active Substance: ACETAMINOPHEN
     Dosage: UNK, PRN

REACTIONS (2)
  - Haematuria [Unknown]
  - Prostatic specific antigen increased [Unknown]
